FAERS Safety Report 8222459-4 (Version None)
Quarter: 2012Q1

REPORT INFORMATION
  Report Type: 
  Country: None (occurrence: None)
  Receive Date: 20120320
  Receipt Date: 20120315
  Transmission Date: 20120608
  Serious: No
  Sender: FDA-Public Use
  Company Number: PHHY2012JP008870

PATIENT
  Sex: Male
  Weight: 59 kg

DRUGS (4)
  1. DOCETAXEL [Suspect]
     Dosage: 110MG (EVERY 4 WEEKS)
     Route: 041
     Dates: start: 20100303, end: 20110330
  2. DECADRON [Suspect]
     Dosage: 1 MG, UNK
     Route: 048
     Dates: start: 20110420
  3. ZOMETA [Suspect]
     Indication: METASTASES TO BONE
     Dosage: 4 MG, EVERY 4 WEEKS
     Route: 041
     Dates: start: 20090403
  4. PREDNISOLONE [Suspect]
     Dosage: 10 MG, UNK
     Route: 048
     Dates: start: 20100303, end: 20110419

REACTIONS (1)
  - TOOTHACHE [None]
